FAERS Safety Report 7801379-0 (Version None)
Quarter: 2011Q4

REPORT INFORMATION
  Report Type: 
  Country: None (occurrence: None)
  Receive Date: 20111007
  Receipt Date: 20111004
  Transmission Date: 20120403
  Serious: No
  Sender: FDA-Public Use
  Company Number: US-PFIZER INC-2011214737

PATIENT
  Sex: Female
  Weight: 73 kg

DRUGS (2)
  1. BUSPAR [Suspect]
     Dosage: UNK
     Route: 048
  2. COVERA-HS [Suspect]
     Indication: VASOSPASM
     Dosage: 180 MG, UNK
     Route: 048
     Dates: start: 20110831

REACTIONS (3)
  - MIGRAINE [None]
  - DYSPHONIA [None]
  - JOINT SWELLING [None]
